FAERS Safety Report 7880963-2 (Version None)
Quarter: 2011Q4

REPORT INFORMATION
  Report Type: 
  Country: None (occurrence: None)
  Receive Date: 20111101
  Receipt Date: 20111026
  Transmission Date: 20120403
  Serious: Yes (Hospitalization)
  Sender: FDA-Public Use
  Company Number: NL-ABBOTT-11P-114-0868581-00

PATIENT
  Age: 45 Year
  Sex: Female

DRUGS (1)
  1. VALPROATE SODIUM [Suspect]
     Indication: MIGRAINE
     Route: 048
     Dates: start: 20050501, end: 20050719

REACTIONS (1)
  - LIVER DISORDER [None]
